FAERS Safety Report 5144426-X (Version None)
Quarter: 2006Q4

REPORT INFORMATION
  Report Type: 
  Country: None (occurrence: None)
  Receive Date: 20061031
  Receipt Date: 20061011
  Transmission Date: 20070319
  Serious: Yes (Other)
  Sender: FDA-Public Use
  Company Number: 2006128582

PATIENT

DRUGS (1)
  1. BEXTRA [Suspect]
     Dates: end: 20040901

REACTIONS (5)
  - CEREBROVASCULAR ACCIDENT [None]
  - MYOCARDIAL INFARCTION [None]
  - RENAL DISORDER [None]
  - STEVENS-JOHNSON SYNDROME [None]
  - THROMBOSIS [None]
